FAERS Safety Report 5723625-X (Version None)
Quarter: 2008Q2

REPORT INFORMATION
  Report Type: 
  Country: None (occurrence: None)
  Receive Date: 20080430
  Receipt Date: 20080422
  Transmission Date: 20081010
  Serious: Yes (Hospitalization, Disabling, Other)
  Sender: FDA-Public Use
  Company Number: US-ABBOTT-08P-163-0448594-00

PATIENT
  Sex: Female

DRUGS (4)
  1. BIAXIN [Suspect]
     Indication: MULTIPLE MYELOMA
     Route: 048
     Dates: start: 20080109, end: 20080208
  2. BIAXIN [Suspect]
     Dates: start: 20080331
  3. REVLIMID [Suspect]
     Indication: MULTIPLE MYELOMA
     Route: 048
     Dates: start: 20080331
  4. DEXAMETHASONE [Suspect]
     Indication: MULTIPLE MYELOMA
     Route: 048
     Dates: start: 20080109, end: 20080208

REACTIONS (2)
  - BASAL CELL CARCINOMA [None]
  - DIARRHOEA [None]
